FAERS Safety Report 15967295 (Version 1)
Quarter: 2019Q1

REPORT INFORMATION
  Report Type: Spontaneous
  Country: US (occurrence: US)
  Receive Date: 20190215
  Receipt Date: 20190215
  Transmission Date: 20190418
  Serious: Yes (Other)
  Sender: FDA-Public Use
  Company Number: US-SA-2019SA041041

PATIENT
  Age: 48 Year
  Sex: Female
  Weight: 61.68 kg

DRUGS (3)
  1. TAXOTERE [Suspect]
     Active Substance: DOCETAXEL
     Indication: BREAST CANCER FEMALE
     Dosage: 95 MG, UNK
     Route: 042
     Dates: start: 2010, end: 2010
  2. TAXOTERE [Suspect]
     Active Substance: DOCETAXEL
     Dosage: 95 MG, UNK
     Route: 042
     Dates: start: 2010, end: 2010
  3. CYTOXAN [Concomitant]
     Active Substance: CYCLOPHOSPHAMIDE
     Route: 065

REACTIONS (2)
  - Alopecia [Not Recovered/Not Resolved]
  - Psychological trauma [Unknown]

NARRATIVE: CASE EVENT DATE: 2009
